FAERS Safety Report 12590835 (Version 1)
Quarter: 2016Q3

REPORT INFORMATION
  Report Type: Spontaneous
  Country: US (occurrence: US)
  Receive Date: 20160726
  Receipt Date: 20160726
  Transmission Date: 20161109
  Serious: No
  Sender: FDA-Public Use
  Company Number: US-ELI_LILLY_AND_COMPANY-US201607005228

PATIENT
  Sex: Female

DRUGS (13)
  1. PANTOPRAZOLE [Concomitant]
     Active Substance: PANTOPRAZOLE SODIUM
  2. TRAZODONE [Concomitant]
     Active Substance: TRAZODONE HYDROCHLORIDE
  3. TYLENOL [Concomitant]
     Active Substance: ACETAMINOPHEN
  4. MELOXICAM. [Concomitant]
     Active Substance: MELOXICAM
  5. DULOXETINE. [Concomitant]
     Active Substance: DULOXETINE
  6. CALCIUM [Concomitant]
     Active Substance: CALCIUM
  7. MISOPROSTOL. [Concomitant]
     Active Substance: MISOPROSTOL
  8. ASPIRIN                            /00002701/ [Concomitant]
     Active Substance: ASPIRIN
  9. HYDROCODONE [Concomitant]
     Active Substance: HYDROCODONE
  10. FLUDROCORTISONE [Concomitant]
     Active Substance: FLUDROCORTISONE
     Dosage: UNK
  11. FORTEO [Suspect]
     Active Substance: TERIPARATIDE
     Indication: OSTEOPOROSIS
     Dosage: UNK
     Route: 065
     Dates: start: 2015
  12. LEVOTHYROXINE. [Concomitant]
     Active Substance: LEVOTHYROXINE
  13. PRAVASTATIN. [Concomitant]
     Active Substance: PRAVASTATIN

REACTIONS (6)
  - Injection site bruising [Unknown]
  - Injection site pain [Unknown]
  - Ulcer [Unknown]
  - Injection site haemorrhage [Unknown]
  - Drug dose omission [Unknown]
  - Weight decreased [Unknown]

NARRATIVE: CASE EVENT DATE: 2015
